FAERS Safety Report 4932872-6 (Version None)
Quarter: 2006Q1

REPORT INFORMATION
  Report Type: 
  Country: None (occurrence: None)
  Receive Date: 20060301
  Receipt Date: 20060301
  Transmission Date: 20060701
  Serious: Yes (Life-Threatening, Hospitalization)
  Sender: FDA-Public Use
  Company Number: None

PATIENT
  Age: 82 Year
  Sex: Female
  Weight: 80 kg

DRUGS (3)
  1. SIMVASTATIN [Suspect]
     Indication: HYPERLIPIDAEMIA
     Dosage: 20 MG Q HS PO
     Route: 048
  2. ACCUPRIL [Concomitant]
  3. METOPROLOL [Concomitant]

REACTIONS (1)
  - PNEUMONITIS [None]
